FAERS Safety Report 8583831-6 (Version None)
Quarter: 2012Q3

REPORT INFORMATION
  Report Type: 
  Country: None (occurrence: None)
  Receive Date: 20120810
  Receipt Date: 20120731
  Transmission Date: 20120928
  Serious: Yes (Hospitalization, Other)
  Sender: FDA-Public Use
  Company Number: US-009507513-1205USA03418

PATIENT

DRUGS (15)
  1. CORTICOSTEROIDS (UNSPECIFIED) [Concomitant]
     Dosage: UNK
     Dates: start: 19920101
  2. PREDNISONE TAB [Concomitant]
     Indication: RHEUMATOID ARTHRITIS
     Dosage: 5 DF, QD
     Dates: start: 20031021
  3. PRILOSEC [Concomitant]
     Dosage: 20 DF, QD
     Route: 048
     Dates: start: 20060901
  4. FOSAMAX [Suspect]
     Dosage: 70 MG, QW
     Route: 048
     Dates: start: 20100429, end: 20110126
  5. MOBIC [Concomitant]
     Indication: ARTHRITIS
     Dosage: 7.5 DF, QD
     Dates: start: 20100303, end: 20120201
  6. MELOXICAM [Concomitant]
     Indication: ARTHRITIS
     Dosage: UNK
     Dates: start: 20100303, end: 20120201
  7. METHOTREXATE [Concomitant]
     Indication: RHEUMATOID ARTHRITIS
     Dosage: 10 DF, QW
     Route: 048
     Dates: start: 19970101
  8. FOSAMAX [Suspect]
     Indication: OSTEOPOROSIS
     Dosage: 70 MG, QW
     Route: 048
     Dates: start: 19990101
  9. ASCORBIC ACID [Concomitant]
     Dosage: 500 MG, QD
     Dates: start: 19900101
  10. ASCORBIC ACID [Concomitant]
     Dosage: UNK, BID
  11. FOLIC ACID [Concomitant]
     Dosage: 800 MICROGRAM, QD
     Dates: start: 19900101
  12. OMEPRAZOLE [Concomitant]
     Dosage: UNK
     Dates: start: 20060901
  13. PLAQUENIL [Concomitant]
     Indication: RHEUMATOID ARTHRITIS
  14. CALTRATE + D [Concomitant]
     Dosage: 600MG/400 MG, BID
     Dates: start: 19900101
  15. SYNTHROID [Concomitant]
     Dosage: 75 MICROGRAM, QD
     Dates: start: 19690101

REACTIONS (21)
  - FEMUR FRACTURE [None]
  - HYPERTENSION [None]
  - PALPITATIONS [None]
  - SINUS DISORDER [None]
  - HIP FRACTURE [None]
  - AORTIC VALVE INCOMPETENCE [None]
  - OSTEOARTHRITIS [None]
  - NAUSEA [None]
  - TRICUSPID VALVE INCOMPETENCE [None]
  - MITRAL VALVE INCOMPETENCE [None]
  - SPINAL OSTEOARTHRITIS [None]
  - BACK PAIN [None]
  - LOW TURNOVER OSTEOPATHY [None]
  - ILEUS [None]
  - PYREXIA [None]
  - GAIT DISTURBANCE [None]
  - HYPERTHYROIDISM [None]
  - SYSTEMIC LUPUS ERYTHEMATOSUS [None]
  - LEFT ATRIAL DILATATION [None]
  - INTERVERTEBRAL DISC DEGENERATION [None]
  - GASTROOESOPHAGEAL REFLUX DISEASE [None]
